FAERS Safety Report 6361228-7 (Version None)
Quarter: 2009Q3

REPORT INFORMATION
  Report Type: 
  Country: None (occurrence: None)
  Receive Date: 20090918
  Receipt Date: 20090916
  Transmission Date: 20100115
  Serious: Yes (Other)
  Sender: FDA-Public Use
  Company Number: US-TEVA-038657

PATIENT
  Age: 29 Year
  Sex: Female
  Weight: 44.946 kg

DRUGS (1)
  1. PLAN B [Suspect]
     Indication: POST COITAL CONTRACEPTION
     Route: 048
     Dates: start: 20081207, end: 20081207

REACTIONS (4)
  - ABORTION SPONTANEOUS [None]
  - DRUG INEFFECTIVE [None]
  - PREGNANCY AFTER POST COITAL CONTRACEPTION [None]
  - VAGINAL HAEMORRHAGE [None]
